FAERS Safety Report 7997468-0 (Version None)
Quarter: 2011Q4

REPORT INFORMATION
  Report Type: 
  Country: None (occurrence: None)
  Receive Date: 20111221
  Receipt Date: 20111221
  Transmission Date: 20120403
  Serious: Yes (Other)
  Sender: FDA-Public Use
  Company Number: None

PATIENT
  Age: 71 Year
  Sex: Female
  Weight: 55.791 kg

DRUGS (1)
  1. PRAVASTATIN SODIUM [Suspect]
     Indication: BLOOD CHOLESTEROL INCREASED
     Dosage: 40MG
     Route: 048
     Dates: start: 20110625, end: 20111115

REACTIONS (3)
  - ATRIAL TACHYCARDIA [None]
  - ATRIAL FIBRILLATION [None]
  - HEART RATE IRREGULAR [None]
